FAERS Safety Report 11160074 (Version 3)
Quarter: 2015Q3

REPORT INFORMATION
  Report Type: Spontaneous
  Country: TW (occurrence: TW)
  Receive Date: 20150603
  Receipt Date: 20150731
  Transmission Date: 20151125
  Serious: Yes (Other)
  Sender: FDA-Public Use
  Company Number: TW-ABBVIE-15P-153-1403281-00

PATIENT
  Age: 9 Year
  Sex: Female
  Weight: 32 kg

DRUGS (1)
  1. LEUPLIN [Suspect]
     Active Substance: LEUPROLIDE ACETATE
     Indication: PRECOCIOUS PUBERTY
     Dosage: 3.75 MG, MONTHLY
     Route: 058
     Dates: start: 201411

REACTIONS (3)
  - Injection site erythema [Recovered/Resolved]
  - Injection site abscess [Recovered/Resolved]
  - Injection site inflammation [Recovered/Resolved]

NARRATIVE: CASE EVENT DATE: 20150424
